FAERS Safety Report 19974500 (Version 1)
Quarter: 2021Q4

REPORT INFORMATION
  Report Type: Spontaneous
  Country: IT (occurrence: IT)
  Receive Date: 20211020
  Receipt Date: 20211020
  Transmission Date: 20220303
  Serious: Yes (Other)
  Sender: FDA-Public Use
  Company Number: IT-AMNEAL PHARMACEUTICALS-2021-AMRX-04245

PATIENT
  Age: 38 Year
  Sex: Male

DRUGS (5)
  1. TEMOZOLOMIDE [Suspect]
     Active Substance: TEMOZOLOMIDE
     Indication: Glioblastoma
     Dosage: 100 MG/24HR, CONTINUOUS
     Route: 065
     Dates: start: 201902
  2. TEMOZOLOMIDE [Suspect]
     Active Substance: TEMOZOLOMIDE
     Dosage: 140 MILLIGRAM, DAILY
     Route: 065
     Dates: start: 201810, end: 2018
  3. TEMOZOLOMIDE [Suspect]
     Active Substance: TEMOZOLOMIDE
     Dosage: 340 MILLIGRAM, DAILY
     Route: 065
     Dates: start: 2018, end: 2018
  4. DEPATUXIZUMAB MAFODOTIN [Suspect]
     Active Substance: DEPATUXIZUMAB MAFODOTIN
     Indication: Glioblastoma
     Dosage: 1.25 MG/KG, EVERY 2WK
     Route: 065
     Dates: start: 201902, end: 2019
  5. DEPATUXIZUMAB MAFODOTIN [Suspect]
     Active Substance: DEPATUXIZUMAB MAFODOTIN
     Dosage: DOSE DECREASED
     Route: 065
     Dates: start: 2019

REACTIONS (3)
  - Photophobia [Recovered/Resolved]
  - Foreign body sensation in eyes [Recovered/Resolved]
  - Vision blurred [Recovered/Resolved]
